FAERS Safety Report 25794533 (Version 1)
Quarter: 2025Q3

REPORT INFORMATION
  Report Type: Report from Study
  Country: US (occurrence: US)
  Receive Date: 20250912
  Receipt Date: 20250912
  Transmission Date: 20251020
  Serious: Yes (Other)
  Sender: ABBVIE
  Company Number: US-ABBVIE-6455229

PATIENT
  Age: 76 Year
  Sex: Male

DRUGS (1)
  1. IMBRUVICA [Suspect]
     Active Substance: IBRUTINIB
     Indication: Chronic lymphocytic leukaemia
     Route: 048
     Dates: start: 20240826

REACTIONS (10)
  - Endovenous ablation [Unknown]
  - White blood cell count increased [Unknown]
  - Gastrointestinal disorder [Unknown]
  - Spinal disorder [Unknown]
  - Emotional disorder [Unknown]
  - Loss of personal independence in daily activities [Unknown]
  - Fear of falling [Unknown]
  - Balance disorder [Unknown]
  - Muscle disorder [Unknown]
  - Asthenia [Unknown]

NARRATIVE: CASE EVENT DATE: 20250801
